FAERS Safety Report 9731850 (Version 1)
Quarter: 2013Q4

REPORT INFORMATION
  Report Type: Spontaneous
  Country: JP (occurrence: JP)
  Receive Date: 20131204
  Receipt Date: 20131204
  Transmission Date: 20140711
  Serious: Yes (Other)
  Sender: FDA-Public Use
  Company Number: JP-BAYER-2013-143972

PATIENT
  Sex: 0

DRUGS (2)
  1. ADALAT [Suspect]
     Route: 048
  2. HYDREA [Concomitant]
     Route: 048

REACTIONS (1)
  - Activated partial thromboplastin time prolonged [None]
